FAERS Safety Report 10947800 (Version 2)
Quarter: 2015Q1

REPORT INFORMATION
  Report Type: Spontaneous
  Country: US (occurrence: US)
  Receive Date: 20150324
  Receipt Date: 20150326
  Transmission Date: 20150721
  Serious: Yes (Death)
  Sender: FDA-Public Use
  Company Number: US-ROCHE-1554654

PATIENT
  Age: 74 Year
  Sex: Female
  Weight: 36.77 kg

DRUGS (1)
  1. XELODA [Suspect]
     Active Substance: CAPECITABINE
     Indication: COLON CANCER
     Route: 048
     Dates: start: 20130820

REACTIONS (4)
  - Cachexia [Fatal]
  - Performance status decreased [Fatal]
  - Mental status changes [Fatal]
  - Failure to thrive [Fatal]

NARRATIVE: CASE EVENT DATE: 20140409
